FAERS Safety Report 8026100-5 (Version None)
Quarter: 2012Q1

REPORT INFORMATION
  Report Type: 
  Country: None (occurrence: None)
  Receive Date: 20120105
  Receipt Date: 20110622
  Transmission Date: 20120608
  Serious: No
  Sender: FDA-Public Use
  Company Number: US-ABBOTT-11P-163-0734490-00

PATIENT
  Sex: Female
  Weight: 49.94 kg

DRUGS (3)
  1. SYNTHROID [Suspect]
     Dates: start: 20110607
  2. ZOLOFT [Concomitant]
     Indication: DEPRESSION
  3. SYNTHROID [Suspect]
     Indication: HYPOTHYROIDISM
     Dates: start: 20090101, end: 20110606

REACTIONS (2)
  - FATIGUE [None]
  - BLOOD THYROID STIMULATING HORMONE DECREASED [None]
